FAERS Safety Report 6023565-5 (Version None)
Quarter: 2008Q4

REPORT INFORMATION
  Report Type: 
  Country: None (occurrence: None)
  Receive Date: 20081226
  Receipt Date: 20081226
  Transmission Date: 20090506
  Serious: Yes (Hospitalization)
  Sender: FDA-Public Use
  Company Number: None

PATIENT
  Age: 55 Year
  Sex: Female
  Weight: 74.8435 kg

DRUGS (1)
  1. ACTONEL [Suspect]
     Indication: RESORPTION BONE INCREASED
     Dates: start: 20081219, end: 20081219

REACTIONS (2)
  - DRUG HYPERSENSITIVITY [None]
  - NAUSEA [None]
